FAERS Safety Report 5755602-7 (Version None)
Quarter: 2008Q2

REPORT INFORMATION
  Report Type: 
  Country: None (occurrence: None)
  Receive Date: 20080602
  Receipt Date: 20080522
  Transmission Date: 20081010
  Serious: Yes (Other)
  Sender: FDA-Public Use
  Company Number: KR-JNJFOC-20080505411

PATIENT
  Age: 87 Year
  Sex: Female

DRUGS (3)
  1. DURAGESIC-100 [Suspect]
     Indication: ARTHRALGIA
     Route: 062
  2. ACETAMINOPHEN AND OXYCODONE HCL [Suspect]
     Indication: ARTHRALGIA
     Route: 048
  3. OXYCONTIN [Concomitant]
     Indication: ARTHRALGIA
     Route: 048

REACTIONS (3)
  - APPLICATION SITE PRURITUS [None]
  - DRUG INEFFECTIVE [None]
  - SCHIZOPHRENIFORM DISORDER [None]
